FAERS Safety Report 4613908-9 (Version None)
Quarter: 2005Q1

REPORT INFORMATION
  Report Type: 
  Country: None (occurrence: None)
  Receive Date: 20050321
  Receipt Date: 20050318
  Transmission Date: 20050727
  Serious: Yes (Hospitalization)
  Sender: FDA-Public Use
  Company Number: 119

PATIENT
  Age: 52 Year
  Sex: Female

DRUGS (8)
  1. MELPHALAN [Suspect]
     Indication: MULTIPLE MYELOMA
     Dosage: 312MG PER DAY
     Route: 042
     Dates: start: 20041013
  2. AREDIA [Concomitant]
     Route: 042
  3. ACYCLOVIR [Concomitant]
     Route: 048
  4. PROTONIX [Concomitant]
     Route: 048
  5. PROCRIT [Concomitant]
     Route: 048
  6. FENTANYL [Concomitant]
  7. MARINOL [Concomitant]
     Route: 048
  8. NIFEREX [Concomitant]
     Route: 048

REACTIONS (8)
  - ASTHENIA [None]
  - CATHETER SITE INFECTION [None]
  - COLITIS [None]
  - CYTOMEGALOVIRUS INFECTION [None]
  - DIARRHOEA [None]
  - FAILURE TO THRIVE [None]
  - OESOPHAGITIS [None]
  - PYREXIA [None]
